FAERS Safety Report 10459632 (Version 1)
Quarter: 2014Q3

REPORT INFORMATION
  Report Type: Other
  Country: US (occurrence: US)
  Receive Date: 20140917
  Receipt Date: 20140917
  Transmission Date: 20150326
  Serious: Yes (Other)
  Sender: FDA-Public Use
  Company Number: US-BRISTOL-MYERS SQUIBB COMPANY-21393889

PATIENT
  Age: 55 Year
  Sex: Female

DRUGS (1)
  1. TRIAMCINOLONE ACE INJ 40 MG [Suspect]
     Active Substance: TRIAMCINOLONE ACETONIDE
     Dosage: 1DF:40MG IN 1 ML

REACTIONS (2)
  - Optic neuropathy [Unknown]
  - Incorrect route of drug administration [Unknown]
